FAERS Safety Report 5464809-8 (Version None)
Quarter: 2007Q3

REPORT INFORMATION
  Report Type: 
  Country: None (occurrence: None)
  Receive Date: 20070921
  Receipt Date: 20070911
  Transmission Date: 20080115
  Serious: Yes (Death, Other)
  Sender: FDA-Public Use
  Company Number: DZ-PFIZER INC-2007075840

PATIENT
  Age: 69 Year
  Sex: Male

DRUGS (5)
  1. TAHOR [Suspect]
     Indication: MYOCARDIAL ISCHAEMIA
     Route: 048
     Dates: start: 20070501, end: 20070601
  2. COAPROVEL [Suspect]
     Route: 048
     Dates: start: 20070501, end: 20070601
  3. INSULIN [Concomitant]
  4. ASPIRIN [Concomitant]
  5. ADALAT [Concomitant]

REACTIONS (4)
  - APATHY [None]
  - DEATH [None]
  - HYPOTONIA [None]
  - SYNCOPE [None]
